FAERS Safety Report 18756215 (Version 1)
Quarter: 2021Q1

REPORT INFORMATION
  Report Type: Report from Study
  Country: PL (occurrence: PL)
  Receive Date: 20210119
  Receipt Date: 20210119
  Transmission Date: 20210419
  Serious: Yes (Other)
  Sender: FDA-Public Use
  Company Number: PL-PFIZER INC-2021034435

PATIENT
  Age: 177 Month
  Sex: Female

DRUGS (3)
  1. CARBOPLATIN. [Suspect]
     Active Substance: CARBOPLATIN
     Indication: OVARIAN EMBRYONAL CARCINOMA
     Dosage: 500 MG/M2, DAILY,  DAYS ?4 TO ?2
  2. MELPHALAN. [Suspect]
     Active Substance: MELPHALAN
     Indication: OVARIAN EMBRYONAL CARCINOMA
     Dosage: 140 MG/M2, ON DAY ?6
  3. ETOPOSIDE. [Suspect]
     Active Substance: ETOPOSIDE
     Indication: OVARIAN EMBRYONAL CARCINOMA
     Dosage: 1800 MG/M2, ON DAY ?5

REACTIONS (5)
  - Neutropenia [Unknown]
  - Pyrexia [Unknown]
  - Leukopenia [Unknown]
  - Mucosal inflammation [Unknown]
  - Sepsis [Unknown]
